FAERS Safety Report 8428253 (Version 4)
Quarter: 2013Q2

REPORT INFORMATION
  Report Type: Report from Study
  Country: AR (occurrence: AR)
  Receive Date: 20120227
  Receipt Date: 20130620
  Transmission Date: 20140414
  Serious: Yes (Hospitalization)
  Sender: FDA-Public Use
  Company Number: AR-ROCHE-1042899

PATIENT
  Age: 83 Year
  Sex: Female

DRUGS (2)
  1. LUCENTIS [Suspect]
     Indication: MACULOPATHY
     Dosage: THREE AMPOULES
     Route: 050
     Dates: start: 201106
  2. LUCENTIS [Suspect]
     Route: 050
     Dates: start: 201109

REACTIONS (4)
  - Fall [Unknown]
  - Hip fracture [Recovered/Resolved]
  - Visual impairment [Recovering/Resolving]
  - Drug effect decreased [Unknown]
